FAERS Safety Report 8159790-7 (Version None)
Quarter: 2012Q1

REPORT INFORMATION
  Report Type: 
  Country: None (occurrence: None)
  Receive Date: 20120223
  Receipt Date: 20120216
  Transmission Date: 20120608
  Serious: Yes (Life-Threatening)
  Sender: FDA-Public Use
  Company Number: US-ACTELION-A-NJ2011-56614

PATIENT

DRUGS (3)
  1. TRACLEER [Suspect]
     Indication: PULMONARY HYPERTENSION
     Dosage: 125 MG, BID
     Route: 048
     Dates: start: 20060201
  2. TRACLEER [Suspect]
     Dosage: 62.5 MG, BID
     Route: 048
     Dates: start: 20060101, end: 20060201
  3. REVATIO [Concomitant]

REACTIONS (5)
  - PELVIC MASS [None]
  - OBSTRUCTIVE UROPATHY [None]
  - UTERINE CANCER [None]
  - TERMINAL STATE [None]
  - LYMPHOMA [None]
